FAERS Safety Report 6037453-1 (Version None)
Quarter: 2009Q1

REPORT INFORMATION
  Report Type: 
  Country: None (occurrence: None)
  Receive Date: 20090114
  Receipt Date: 20090112
  Transmission Date: 20090719
  Serious: Yes (Other)
  Sender: FDA-Public Use
  Company Number: GB-PFIZER INC-2009154258

PATIENT

DRUGS (6)
  1. CHAMPIX [Suspect]
     Indication: SMOKING CESSATION THERAPY
     Dosage: 0.5 MG, 2X/DAY
     Route: 048
     Dates: start: 20081119, end: 20081201
  2. ACETYLSALICYLIC ACID [Concomitant]
     Dosage: UNK
     Route: 048
  3. NITROGLYCERIN [Concomitant]
     Dosage: UNK
     Route: 060
  4. LANSOPRAZOLE [Concomitant]
     Dosage: UNK
     Route: 048
  5. SIMVASTATIN [Concomitant]
     Dosage: UNK
     Route: 048
  6. VENTOLIN [Concomitant]
     Dosage: UNK
     Route: 055

REACTIONS (3)
  - DEPRESSED MOOD [None]
  - INCORRECT DOSE ADMINISTERED [None]
  - MORBID THOUGHTS [None]
